FAERS Safety Report 9671990 (Version 1)
Quarter: 2013Q4

REPORT INFORMATION
  Report Type: Spontaneous
  Country: US (occurrence: None)
  Receive Date: 20131105
  Receipt Date: 20131105
  Transmission Date: 20140711
  Serious: Yes (Hospitalization)
  Sender: FDA-Public Use
  Company Number: None

PATIENT
  Age: 76 Year
  Sex: Male
  Weight: 77.11 kg

DRUGS (17)
  1. BUTRANS [Suspect]
     Indication: BACK PAIN
     Dosage: 4 PATCHES
     Dates: start: 20130325, end: 20130325
  2. AMLODIPINE [Suspect]
     Dosage: IN MORNING
  3. ATENOLOL [Suspect]
     Dosage: IN MORNING
  4. ATORVASTATIN CALCIUM [Suspect]
     Dosage: IN MORNING
  5. DOXYCYCLINE [Suspect]
  6. OXYCODONE APAP [Suspect]
     Dosage: 4 TIMES/DAY
  7. OXYCONTIN [Suspect]
  8. CIPROFLOXACIN [Suspect]
  9. MAGNESIUM [Suspect]
     Dosage: AT DINNER TIME
  10. MULTIVITAMIN [Suspect]
     Dosage: IN MORNING
  11. ZANTAC [Suspect]
  12. CRANBERRY [Suspect]
     Dosage: 1 MORNING, 1 NIGHT
  13. EXCEDRIN [Suspect]
  14. ADVIL [Suspect]
  15. ADVIL PM [Suspect]
  16. STOOL SOFTENER [Suspect]
     Dosage: AT NIGHT
  17. LAXATIVE [Suspect]
     Dosage: AT NIGHT

REACTIONS (1)
  - Hospitalisation [None]
